FAERS Safety Report 7405496-9 (Version None)
Quarter: 2011Q2

REPORT INFORMATION
  Report Type: 
  Country: None (occurrence: None)
  Receive Date: 20110404
  Receipt Date: 20110322
  Transmission Date: 20111010
  Serious: Yes (Other)
  Sender: FDA-Public Use
  Company Number: B0709259A

PATIENT
  Age: 77 Year
  Sex: Male

DRUGS (1)
  1. DIGOXIN [Suspect]
     Indication: PRODUCT USED FOR UNKNOWN INDICATION

REACTIONS (6)
  - CARDIAC DISORDER [None]
  - BRADYCARDIA [None]
  - TOXICITY TO VARIOUS AGENTS [None]
  - NODAL RHYTHM [None]
  - RENAL IMPAIRMENT [None]
  - ATRIOVENTRICULAR BLOCK [None]
